FAERS Safety Report 14614718 (Version 1)
Quarter: 2018Q1

REPORT INFORMATION
  Report Type: Spontaneous
  Country: GB (occurrence: GB)
  Receive Date: 20180308
  Receipt Date: 20180308
  Transmission Date: 20180509
  Serious: Yes (Other)
  Sender: FDA-Public Use
  Company Number: GB-BAUSCH-BL-2018-005867

PATIENT
  Sex: Female

DRUGS (1)
  1. METRONIDAZOLE. [Suspect]
     Active Substance: METRONIDAZOLE
     Indication: ALVEOLAR OSTEITIS
     Route: 048

REACTIONS (6)
  - Chromaturia [Unknown]
  - Urticaria [Unknown]
  - Faeces pale [Unknown]
  - Hallucination, auditory [Unknown]
  - Nausea [Unknown]
  - Oropharyngeal pain [Unknown]
